FAERS Safety Report 7790928-7 (Version None)
Quarter: 2011Q3

REPORT INFORMATION
  Report Type: 
  Country: None (occurrence: None)
  Receive Date: 20110930
  Receipt Date: 20110930
  Transmission Date: 20111222
  Serious: Yes (Hospitalization)
  Sender: FDA-Public Use
  Company Number: None

PATIENT
  Age: 77 Year
  Sex: Female
  Weight: 54 kg

DRUGS (14)
  1. MIDODRINE HYDROCHLORIDE [Concomitant]
     Route: 048
  2. MEMANTIDINE [Concomitant]
     Route: 048
  3. ASPIRIN [Concomitant]
     Route: 048
  4. CARBIDOPA AND LEVODOPA [Concomitant]
     Route: 048
  5. LORAZEPAM [Concomitant]
     Route: 048
  6. CITALOPRAM [Concomitant]
     Route: 048
  7. FLUDROCORTISONE ACETATE [Concomitant]
     Route: 048
  8. DOCUSATE CALCIUM [Concomitant]
     Route: 048
  9. ROSUVASTATIN [Concomitant]
     Route: 048
  10. SULFAMETHOXAZOLE AND TRIMETHOPRIM [Suspect]
     Indication: URINARY TRACT INFECTION
     Dosage: 800/160
     Route: 048
  11. CALCIUM + VITAMIN D [Concomitant]
     Route: 048
  12. POTASSIUM CHLORIDE [Concomitant]
     Route: 048
  13. DONEPEZIL HCL [Concomitant]
     Route: 048
  14. POLYETHYLENE GLYCOL [Concomitant]
     Route: 048

REACTIONS (4)
  - RASH [None]
  - PYREXIA [None]
  - DRUG HYPERSENSITIVITY [None]
  - CONFUSIONAL STATE [None]
